FAERS Safety Report 25985716 (Version 1)
Quarter: 2025Q4

REPORT INFORMATION
  Report Type: Spontaneous
  Country: EU (occurrence: EU)
  Receive Date: 20251031
  Receipt Date: 20251031
  Transmission Date: 20260117
  Serious: Yes (Hospitalization)
  Sender: PFIZER
  Company Number: EU-Orion Corporation ORION PHARMA-TREX2025-0165

PATIENT
  Age: 72 Year
  Sex: Female

DRUGS (2)
  1. METHOTREXATE [Suspect]
     Active Substance: METHOTREXATE
     Indication: Rheumatoid arthritis
     Dosage: ONE TABLET IN MORNING AND HALF A TABLET IN EVENING
  2. METHOTREXATE [Suspect]
     Active Substance: METHOTREXATE
     Dosage: ONE TABLET IN MORNING AND HALF A TABLET IN EVENING
     Dates: start: 20251021

REACTIONS (1)
  - Colitis [Unknown]
